FAERS Safety Report 4903758-8 (Version None)
Quarter: 2006Q1

REPORT INFORMATION
  Report Type: 
  Country: None (occurrence: None)
  Receive Date: 20060113
  Receipt Date: 20051122
  Transmission Date: 20060701
  Serious: No
  Sender: FDA-Public Use
  Company Number: 2005SP004148

PATIENT
  Sex: Male
  Weight: 90.7194 kg

DRUGS (6)
  1. LUNESTA [Suspect]
     Indication: FIBROMYALGIA
     Dosage: 3 MG; HS; ORAL
     Route: 048
     Dates: start: 20051118
  2. LUNESTA [Suspect]
     Indication: INSOMNIA
     Dosage: 3 MG; HS; ORAL
     Route: 048
     Dates: start: 20051118
  3. ZONEGRAN [Concomitant]
  4. TYLENOL W/ CODEINE [Concomitant]
  5. RESTORIL [Concomitant]
  6. ANTIBIOTICS [Concomitant]

REACTIONS (5)
  - FEELING ABNORMAL [None]
  - HEADACHE [None]
  - NAUSEA [None]
  - SLEEP DISORDER [None]
  - SOMNOLENCE [None]
